FAERS Safety Report 9708763 (Version 1)
Quarter: 2013Q4

REPORT INFORMATION
  Report Type: Spontaneous
  Country: FR (occurrence: None)
  Receive Date: 20131122
  Receipt Date: 20131122
  Transmission Date: 20140711
  Serious: Yes (Other)
  Sender: FDA-Public Use
  Company Number: AXC-2013-000301

PATIENT
  Age: 69 Year
  Sex: Female

DRUGS (3)
  1. PYLERA [Suspect]
     Indication: HELICOBACTER INFECTION
     Dosage: 3 DF, QID, UNKNOWN
     Dates: start: 20130609, end: 20130613
  2. PANTOPRAZOLE [Suspect]
     Indication: HELICOBACTER INFECTION
     Dates: start: 201306, end: 20130613
  3. MEDIATOR (BENFLUOREX HYDROCHLORIDE) [Concomitant]

REACTIONS (19)
  - Musculoskeletal stiffness [None]
  - Musculoskeletal stiffness [None]
  - Fatigue [None]
  - Dizziness [None]
  - Mobility decreased [None]
  - Somnolence [None]
  - Dysgeusia [None]
  - Faeces discoloured [None]
  - Chest discomfort [None]
  - Oophoritis [None]
  - Gamma-glutamyltransferase abnormal [None]
  - Spinal disorder [None]
  - Blood triglycerides abnormal [None]
  - White blood cell count decreased [None]
  - Red blood cell count increased [None]
  - Urine analysis abnormal [None]
  - Helicobacter infection [None]
  - Drug ineffective [None]
  - Asthenia [None]
